FAERS Safety Report 9769734 (Version 1)
Quarter: 2013Q4

REPORT INFORMATION
  Report Type: Spontaneous
  Country: US (occurrence: US)
  Receive Date: 20131218
  Receipt Date: 20131218
  Transmission Date: 20140711
  Serious: No
  Sender: FDA-Public Use
  Company Number: US-VERTEX PHARMACEUTICALS INC-AE-2011-000553

PATIENT
  Age: 56 Year
  Sex: Female

DRUGS (4)
  1. INCIVEK [Suspect]
     Indication: HEPATITIS C
     Route: 048
     Dates: start: 20110717
  2. PEGASYS [Concomitant]
     Indication: HEPATITIS C
     Route: 058
     Dates: start: 20110717
  3. RIBAVIRIN [Concomitant]
     Indication: HEPATITIS C
     Route: 048
     Dates: start: 20110717
  4. FLEXERIL [Concomitant]
     Indication: MUSCLE SPASMS

REACTIONS (6)
  - Pain [Not Recovered/Not Resolved]
  - Irritability [Not Recovered/Not Resolved]
  - Headache [Not Recovered/Not Resolved]
  - Chills [Not Recovered/Not Resolved]
  - Constipation [Not Recovered/Not Resolved]
  - Anal pruritus [Not Recovered/Not Resolved]
